FAERS Safety Report 9065151 (Version 1)
Quarter: 2013Q1

REPORT INFORMATION
  Report Type: Spontaneous
  Country: US (occurrence: US)
  Receive Date: 20130214
  Receipt Date: 20130214
  Transmission Date: 20140127
  Serious: No
  Sender: FDA-Public Use
  Company Number: US-PFIZER INC-2013057182

PATIENT
  Sex: Female

DRUGS (2)
  1. FLECTOR [Suspect]
     Dosage: UNK
     Route: 062
  2. DICLOFENAC [Concomitant]
     Dosage: UNK
     Route: 048

REACTIONS (4)
  - Dyspnoea [Unknown]
  - Exercise tolerance decreased [Unknown]
  - Weight increased [Unknown]
  - Malaise [Unknown]
